FAERS Safety Report 12971406 (Version 1)
Quarter: 2016Q4

REPORT INFORMATION
  Report Type: Spontaneous
  Country: US (occurrence: US)
  Receive Date: 20161123
  Receipt Date: 20161123
  Transmission Date: 20170207
  Serious: No
  Sender: FDA-Public Use
  Company Number: US-JAZZ-2016-US-019993

PATIENT
  Sex: Female

DRUGS (24)
  1. DEXILANT [Concomitant]
     Active Substance: DEXLANSOPRAZOLE
  2. DIPHENHYDRAMINE. [Concomitant]
     Active Substance: DIPHENHYDRAMINE
  3. MODAFINIL. [Concomitant]
     Active Substance: MODAFINIL
  4. ESTRADIOL. [Concomitant]
     Active Substance: ESTRADIOL
  5. LISINOPRIL. [Concomitant]
     Active Substance: LISINOPRIL
  6. XYREM [Suspect]
     Active Substance: SODIUM OXYBATE
     Indication: SLEEP DISORDER
     Dosage: 2 G, BID
     Route: 048
     Dates: start: 201309, end: 201310
  7. SIMVASTATIN. [Concomitant]
     Active Substance: SIMVASTATIN
  8. TRAZODONE [Concomitant]
     Active Substance: TRAZODONE HYDROCHLORIDE
  9. VITAMIN C [Concomitant]
     Active Substance: ASCORBIC ACID
  10. XYREM [Suspect]
     Active Substance: SODIUM OXYBATE
     Dosage: 2.25 G, BID
     Route: 048
     Dates: start: 201610
  11. HYDROCODONE BITARTRATE AND ACETAMINOPHEN [Concomitant]
     Active Substance: ACETAMINOPHEN\HYDROCODONE BITARTRATE
  12. MAXALT-MLT [Concomitant]
     Active Substance: RIZATRIPTAN BENZOATE
  13. OCEAN SALINE NASAL SPRAY [Suspect]
     Active Substance: SODIUM CHLORIDE
  14. OXYMETAZOLINE [Concomitant]
     Active Substance: OXYMETAZOLINE
  15. SUMATRIPTAN SUCCINATE. [Concomitant]
     Active Substance: SUMATRIPTAN SUCCINATE
  16. TRIAMTERENE AND HYDROCHLOROTHIAZIDE [Concomitant]
     Active Substance: HYDROCHLOROTHIAZIDE\TRIAMTERENE
  17. MELATONIN [Concomitant]
     Active Substance: MELATONIN
  18. XYREM [Suspect]
     Active Substance: SODIUM OXYBATE
     Dosage: DOSE ADJUSTMENT
     Dates: start: 201310, end: 2014
  19. PROAIR HFA [Concomitant]
     Active Substance: ALBUTEROL SULFATE
  20. PREMARIN [Concomitant]
     Active Substance: ESTROGENS, CONJUGATED
  21. LYRICA [Concomitant]
     Active Substance: PREGABALIN
  22. AVELOX [Concomitant]
     Active Substance: MOXIFLOXACIN HYDROCHLORIDE
  23. CALCIUM +D                         /00944201/ [Concomitant]
     Active Substance: CALCIUM CARBONATE\CHOLECALCIFEROL
  24. SERTRALINE HCL [Concomitant]
     Active Substance: SERTRALINE HYDROCHLORIDE

REACTIONS (3)
  - Therapeutic response unexpected [Unknown]
  - Pre-existing condition improved [Unknown]
  - Upper respiratory tract infection [Unknown]
